FAERS Safety Report 4746462-1 (Version None)
Quarter: 2005Q3

REPORT INFORMATION
  Report Type: 
  Country: None (occurrence: None)
  Receive Date: 20050816
  Receipt Date: 20050816
  Transmission Date: 20060218
  Serious: Yes (Other)
  Sender: FDA-Public Use
  Company Number: None

PATIENT
  Sex: Female

DRUGS (2)
  1. GLUCOPHAGE XL [Suspect]
     Dosage: 4 PO Q DAY
     Route: 048
  2. ORTHO TRI-CYCLEN [Suspect]
     Dosage: ONE /DAY

REACTIONS (1)
  - ABDOMINAL DISCOMFORT [None]
